FAERS Safety Report 7547049-8 (Version None)
Quarter: 2011Q2

REPORT INFORMATION
  Report Type: 
  Country: None (occurrence: None)
  Receive Date: 20110607
  Receipt Date: 20110601
  Transmission Date: 20111010
  Serious: Yes (Other)
  Sender: FDA-Public Use
  Company Number: 2011SP016024

PATIENT
  Age: 64 Year
  Sex: Female

DRUGS (15)
  1. ALBUTEROL SULFATE AUTOHALER [Concomitant]
  2. BENZTROPINE MESYLATE [Concomitant]
  3. SPIRIVA [Concomitant]
  4. RISPERIDONE [Concomitant]
  5. GABAPENTIN [Concomitant]
  6. REMERON [Suspect]
     Indication: DEPRESSION
     Dosage: 15 MG;QPM;PO
     Route: 048
     Dates: start: 20110309, end: 20110409
  7. PROPRANOLOL [Concomitant]
  8. CHOLESTYRAMINE [Concomitant]
  9. LEVOTHYROXINE SODIUM [Concomitant]
  10. PANTOPRAZOLE [Concomitant]
  11. VITAMIN D [Concomitant]
  12. DONEPEZIL HCL [Concomitant]
  13. LOTEMAX [Concomitant]
  14. ZYRTEC [Concomitant]
  15. VANCOMYCIN HCL [Concomitant]

REACTIONS (3)
  - MUSCLE SPASMS [None]
  - EXTRAPYRAMIDAL DISORDER [None]
  - TORTICOLLIS [None]
